FAERS Safety Report 8034061-8 (Version None)
Quarter: 2011Q4

REPORT INFORMATION
  Report Type: 
  Country: None (occurrence: None)
  Receive Date: 20111227
  Receipt Date: 20111212
  Transmission Date: 20120403
  Serious: Yes (Other)
  Sender: FDA-Public Use
  Company Number: US-1189427

PATIENT
  Age: 26 Year
  Sex: Female

DRUGS (1)
  1. PROPARACAINE HCL [Suspect]
     Dosage: (OPHTHALMIC)
     Route: 047

REACTIONS (10)
  - CORNEAL EPITHELIUM DEFECT [None]
  - CORNEAL OPACITY [None]
  - CORNEAL INFILTRATES [None]
  - VISUAL ACUITY REDUCED [None]
  - EYE PAIN [None]
  - CORNEAL NEOVASCULARISATION [None]
  - INFECTIOUS CRYSTALLINE KERATOPATHY [None]
  - RASH [None]
  - CORNEAL SCAR [None]
  - DRUG ABUSE [None]
